FAERS Safety Report 15732662 (Version 1)
Quarter: 2018Q4

REPORT INFORMATION
  Report Type: Spontaneous
  Country: NO (occurrence: NO)
  Receive Date: 20181217
  Receipt Date: 20181217
  Transmission Date: 20190205
  Serious: Yes (Disabling)
  Sender: FDA-Public Use
  Company Number: NO-BAYER-2018-233026

PATIENT
  Age: 21 Year
  Sex: Female
  Weight: 50 kg

DRUGS (1)
  1. YASMIN [Suspect]
     Active Substance: DROSPIRENONE\ETHINYL ESTRADIOL
     Indication: CONTRACEPTION
     Dosage: 3 MG, UNK
     Route: 048
     Dates: start: 20040501, end: 20060901

REACTIONS (3)
  - Breast enlargement [Unknown]
  - Eustachian tube patulous [Not Recovered/Not Resolved]
  - Breast swelling [Unknown]

NARRATIVE: CASE EVENT DATE: 20040623
